FAERS Safety Report 8151920-6 (Version None)
Quarter: 2012Q1

REPORT INFORMATION
  Report Type: 
  Country: None (occurrence: None)
  Receive Date: 20120221
  Receipt Date: 20120215
  Transmission Date: 20120608
  Serious: No
  Sender: FDA-Public Use
  Company Number: US-PFIZER INC-2011074915

PATIENT
  Sex: Female

DRUGS (3)
  1. VERAPAMIL [Suspect]
     Dosage: UNK
  2. VERAPAMIL HCL [Suspect]
     Dosage: 240 MG, UNK
  3. CALAN [Suspect]
     Dosage: UNK

REACTIONS (3)
  - DYSPNOEA [None]
  - DIZZINESS [None]
  - HYPOKINESIA [None]
